FAERS Safety Report 8799925 (Version 1)
Quarter: 2012Q4

REPORT INFORMATION
  Report Type: Spontaneous
  Country: US (occurrence: None)
  Receive Date: 20120918
  Receipt Date: 20120918
  Transmission Date: 20130627
  Serious: No
  Sender: FDA-Public Use
  Company Number: None

PATIENT
  Age: 85 Year
  Sex: Male

DRUGS (1)
  1. ZYTIGA [Suspect]
     Indication: MALIGNANT NEOPLASM OF PROSTATE
     Route: 048
     Dates: start: 20120724, end: 20120823

REACTIONS (2)
  - Headache [None]
  - Asthenia [None]
